FAERS Safety Report 7474568-5 (Version None)
Quarter: 2011Q2

REPORT INFORMATION
  Report Type: 
  Country: None (occurrence: None)
  Receive Date: 20110503
  Receipt Date: 20110411
  Transmission Date: 20111010
  Serious: Yes (Hospitalization)
  Sender: FDA-Public Use
  Company Number: BE-022468

PATIENT
  Age: 75 Year
  Sex: Male

DRUGS (3)
  1. ACETAMINOPHEN [Concomitant]
  2. CHLORAMBUCIL [Suspect]
     Indication: CHRONIC LYMPHOCYTIC LEUKAEMIA
     Dosage: TABLET, ORAL
     Route: 048
     Dates: start: 20110223
  3. TRAMADOL HCL [Concomitant]

REACTIONS (2)
  - FEBRILE NEUTROPENIA [None]
  - PHARYNGITIS BACTERIAL [None]
